FAERS Safety Report 10061143 (Version 1)
Quarter: 2014Q2

REPORT INFORMATION
  Report Type: Spontaneous
  Country: US (occurrence: US)
  Receive Date: 20140406
  Receipt Date: 20140406
  Transmission Date: 20141212
  Serious: Yes (Death)
  Sender: FDA-Public Use
  Company Number: US-BRISTOL-MYERS SQUIBB COMPANY-20581112

PATIENT
  Sex: Male

DRUGS (2)
  1. BYETTA [Suspect]
     Dates: start: 200605, end: 201004
  2. VICTOZA [Suspect]
     Dates: start: 201004, end: 2011

REACTIONS (1)
  - Pancreatic carcinoma [Fatal]
